FAERS Safety Report 7660237-5 (Version None)
Quarter: 2011Q3

REPORT INFORMATION
  Report Type: 
  Country: None (occurrence: None)
  Receive Date: 20110805
  Receipt Date: 20110729
  Transmission Date: 20111222
  Serious: Yes (Other)
  Sender: FDA-Public Use
  Company Number: PHHY2010CA32872

PATIENT
  Sex: Female

DRUGS (2)
  1. VOLTAREN [Concomitant]
     Indication: ARTHRALGIA
  2. ZOLEDRONOC ACID [Suspect]
     Indication: OSTEOPOROSIS
     Dosage: 5 MG
     Route: 042
     Dates: start: 20100507

REACTIONS (4)
  - ARTHRALGIA [None]
  - HERNIA [None]
  - PAIN IN EXTREMITY [None]
  - GAIT DISTURBANCE [None]
